FAERS Safety Report 23512635 (Version 1)
Quarter: 2024Q1

REPORT INFORMATION
  Report Type: Spontaneous
  Country: US (occurrence: None)
  Receive Date: 20240209
  Receipt Date: 20240209
  Transmission Date: 20240410
  Serious: Yes (Hospitalization)
  Sender: FDA-Public Use
  Company Number: None

PATIENT
  Age: 12 Year
  Sex: Male
  Weight: 45.5 kg

DRUGS (6)
  1. ABATACEPT [Suspect]
     Active Substance: ABATACEPT
     Indication: Prophylaxis against graft versus host disease
     Dosage: OTHER FREQUENCY : D +1,5,14,28,56,84;?
     Route: 040
     Dates: start: 20230920, end: 20231213
  2. lOH/diphenhyd/lidocaine/MgOH/simeth topical [Concomitant]
     Dates: start: 20231108, end: 20240113
  3. chlorhexidine topical [Concomitant]
     Dates: start: 20231016, end: 20240131
  4. CHOLECALCIFEROL [Concomitant]
     Active Substance: CHOLECALCIFEROL
     Dates: start: 20230918, end: 20240209
  5. CLONIDINE [Concomitant]
     Active Substance: CLONIDINE
     Dates: start: 20231003, end: 20240107
  6. chlorhexidine topical [Concomitant]
     Dates: start: 20231129, end: 20240209

REACTIONS (10)
  - Allogenic stem cell transplantation [None]
  - Gingival pain [None]
  - Pharyngeal ulceration [None]
  - Necrotising ulcerative gingivostomatitis [None]
  - Hypophagia [None]
  - Palmar erythema [None]
  - Pityriasis [None]
  - Adenovirus test positive [None]
  - Acanthosis [None]
  - Oesophagitis [None]

NARRATIVE: CASE EVENT DATE: 20240118
